FAERS Safety Report 8942908 (Version 4)
Quarter: 2013Q1

REPORT INFORMATION
  Report Type: Spontaneous
  Country: DK (occurrence: DK)
  Receive Date: 20121204
  Receipt Date: 20130204
  Transmission Date: 20140127
  Serious: Yes (Death, Other)
  Sender: FDA-Public Use
  Company Number: DK-ACCORD-015370

PATIENT
  Age: 64 Year
  Sex: Female

DRUGS (9)
  1. LETROZOLE [Suspect]
     Indication: BREAST CANCER METASTATIC
     Route: 065
  2. TAXOL [Suspect]
     Indication: BREAST CANCER METASTATIC
     Route: 065
     Dates: start: 201112
  3. EPIRUBICIN [Concomitant]
  4. ERIBULIN [Suspect]
     Indication: PRODUCT USED FOR UNKNOWN INDICATION
     Route: 065
     Dates: start: 201202
  5. HERCEPTIN [Suspect]
     Indication: BREAST CANCER METASTATIC
     Route: 065
  6. LAPATINIB [Suspect]
     Indication: BREAST CANCER METASTATIC
     Route: 065
  7. CYCLOPHOSPHAMIDE [Concomitant]
  8. VINORELBINE [Suspect]
     Indication: BREAST CANCER METASTATIC
     Route: 065
  9. XELODA [Suspect]
     Indication: BREAST CANCER METASTATIC
     Route: 065

REACTIONS (4)
  - Malignant neoplasm progression [Fatal]
  - Sensory disturbance [Unknown]
  - Superior vena cava syndrome [Unknown]
  - Fracture [Unknown]
